FAERS Safety Report 11889997 (Version 1)
Quarter: 2016Q1

REPORT INFORMATION
  Report Type: Report from Study
  Country: GT (occurrence: GT)
  Receive Date: 20160105
  Receipt Date: 20160105
  Transmission Date: 20160526
  Serious: Yes (Other)
  Sender: FDA-Public Use
  Company Number: PHHY2015GT172093

PATIENT
  Sex: Female

DRUGS (1)
  1. GLIVEC [Suspect]
     Active Substance: IMATINIB MESYLATE
     Indication: CHRONIC MYELOID LEUKAEMIA
     Dosage: 400 MG, UNK
     Route: 065
     Dates: start: 2014

REACTIONS (5)
  - Blindness unilateral [Unknown]
  - Effusion [Unknown]
  - Eyelid oedema [Unknown]
  - Gastritis [Unknown]
  - Diverticulum intestinal [Unknown]
